FAERS Safety Report 20472050 (Version 1)
Quarter: 2022Q1

REPORT INFORMATION
  Report Type: Spontaneous
  Country: US (occurrence: US)
  Receive Date: 20220214
  Receipt Date: 20220214
  Transmission Date: 20220423
  Serious: No
  Sender: FDA-Public Use
  Company Number: US-BIOMARINAP-US-2022-141308

PATIENT
  Age: 23 Year

DRUGS (2)
  1. ALDURAZYME [Suspect]
     Active Substance: LARONIDASE
     Indication: Mucopolysaccharidosis I
     Dosage: 46.40 MILLIGRAM, QW
     Route: 042
     Dates: start: 20190628, end: 20210204
  2. ALDURAZYME [Suspect]
     Active Substance: LARONIDASE
     Dosage: 34.8 MILLIGRAM, QW
     Route: 042
     Dates: start: 20210204

REACTIONS (2)
  - Fatigue [Recovering/Resolving]
  - Product dose omission issue [Recovering/Resolving]
